FAERS Safety Report 26062253 (Version 1)
Quarter: 2025Q4

REPORT INFORMATION
  Report Type: Spontaneous
  Country: US (occurrence: US)
  Receive Date: 20251119
  Receipt Date: 20251119
  Transmission Date: 20260117
  Serious: No
  Sender: ALVOGEN
  Company Number: US-ALVOGEN-2025096522

PATIENT
  Sex: Female

DRUGS (7)
  1. TERIPARATIDE [Suspect]
     Active Substance: TERIPARATIDE
     Indication: Osteoporosis
     Dosage: START DATE: SINCE ONE YEAR
     Dates: start: 2024
  2. TERIPARATIDE [Suspect]
     Active Substance: TERIPARATIDE
     Indication: Osteoporosis
     Dosage: EXPIRATION: 30-NOV-2025?USED TWO WEEKS, AND LEFT WITH TWO WEEK MEDICATION
     Dates: start: 202503
  3. GABAPENTIN [Suspect]
     Active Substance: GABAPENTIN
     Indication: Product used for unknown indication
     Dosage: MORNING AND NIGHT
  4. MESALAMINE [Concomitant]
     Active Substance: MESALAMINE
     Indication: Abdominal discomfort
  5. FAMOTIDINE [Concomitant]
     Active Substance: FAMOTIDINE
     Indication: Product used for unknown indication
  6. NEFAZODONE [Concomitant]
     Active Substance: NEFAZODONE
     Indication: Product used for unknown indication
     Dosage: AT NIGHT.
  7. ADDERALL XR [Concomitant]
     Active Substance: AMPHETAMINE ASPARTATE\AMPHETAMINE SULFATE\DEXTROAMPHETAMINE SACCHARATE\DEXTROAMPHETAMINE SULFATE
     Indication: Product used for unknown indication
     Dosage: XR (EXTENDED RELEASE) 30

REACTIONS (8)
  - Malaise [Unknown]
  - Dizziness [Unknown]
  - Product dose omission issue [Unknown]
  - Wrong technique in product usage process [Unknown]
  - Device operational issue [Unknown]
  - Device malfunction [Unknown]
  - Device issue [Unknown]
  - Device defective [Unknown]

NARRATIVE: CASE EVENT DATE: 20250101
